FAERS Safety Report 8096803-5 (Version None)
Quarter: 2012Q1

REPORT INFORMATION
  Report Type: 
  Country: None (occurrence: None)
  Receive Date: 20120129
  Receipt Date: 20111202
  Transmission Date: 20120608
  Serious: No
  Sender: FDA-Public Use
  Company Number: US-ABBOTT-11P-163-0880446-00

PATIENT
  Age: 66 Year
  Sex: Female

DRUGS (10)
  1. SIMVASTATIN [Concomitant]
     Indication: BLOOD CHOLESTEROL INCREASED
  2. UNKNOWN MEDICATION [Concomitant]
     Indication: PSORIASIS
     Route: 061
  3. DIGOXIN [Concomitant]
     Indication: CARDIAC DISORDER
  4. HYDROCODONE BITARTRATE [Concomitant]
     Indication: PAIN
  5. METOPROLOL TARTRATE [Concomitant]
     Indication: BLOOD PRESSURE
  6. HUMIRA [Suspect]
  7. ASPIRIN [Concomitant]
     Indication: ATRIAL FIBRILLATION
  8. HUMIRA [Suspect]
     Indication: PSORIASIS
     Dosage: INTERRUPTED
  9. METOPROLOL TARTRATE [Concomitant]
     Indication: CARDIAC DISORDER
  10. COUMADIN [Concomitant]
     Indication: ATRIAL FIBRILLATION

REACTIONS (3)
  - DIZZINESS [None]
  - FATIGUE [None]
  - BLOOD GLUCOSE INCREASED [None]
